FAERS Safety Report 10755624 (Version 3)
Quarter: 2016Q2

REPORT INFORMATION
  Report Type: Report from Study
  Country: BR (occurrence: BR)
  Receive Date: 20150202
  Receipt Date: 20160517
  Transmission Date: 20160815
  Serious: Yes (Other)
  Sender: FDA-Public Use
  Company Number: BR-ABBVIE-15K-020-1339874-00

PATIENT
  Age: 75 Year
  Sex: Male
  Weight: 68 kg

DRUGS (5)
  1. TRAMAL [Concomitant]
     Active Substance: TRAMADOL
     Indication: ARTHRITIS
     Route: 048
  2. HUMIRA [Suspect]
     Active Substance: ADALIMUMAB
     Indication: RHEUMATOID ARTHRITIS
     Route: 058
     Dates: start: 20110103, end: 201403
  3. ATENOLOL. [Concomitant]
     Active Substance: ATENOLOL
     Indication: BLOOD PRESSURE MANAGEMENT
     Route: 048
  4. ATENOLOL. [Concomitant]
     Active Substance: ATENOLOL
     Indication: HYPERTENSION
  5. ATORVASTATIN [Concomitant]
     Active Substance: ATORVASTATIN
     Indication: BLOOD CHOLESTEROL INCREASED
     Route: 048

REACTIONS (17)
  - Anaemia [Not Recovered/Not Resolved]
  - Joint swelling [Recovered/Resolved]
  - Immunodeficiency [Not Recovered/Not Resolved]
  - Gastric disorder [Recovered/Resolved]
  - Fall [Recovered/Resolved]
  - Device related infection [Recovered/Resolved]
  - Phlebitis [Recovered/Resolved]
  - Pain [Recovering/Resolving]
  - Escherichia infection [Recovered/Resolved]
  - Pathogen resistance [Recovered/Resolved]
  - Device dislocation [Recovering/Resolving]
  - Arthritis infective [Recovered/Resolved]
  - Staphylococcal infection [Unknown]
  - Patient-device incompatibility [Not Recovered/Not Resolved]
  - Arthralgia [Recovered/Resolved]
  - Patient-device incompatibility [Recovered/Resolved]
  - Secretion discharge [Recovered/Resolved]

NARRATIVE: CASE EVENT DATE: 2014
